FAERS Safety Report 6790261-6 (Version None)
Quarter: 2010Q2

REPORT INFORMATION
  Report Type: 
  Country: None (occurrence: None)
  Receive Date: 20100624
  Receipt Date: 20100621
  Transmission Date: 20101027
  Serious: Yes (Other)
  Sender: FDA-Public Use
  Company Number: CA-SANOFI-AVENTIS-2010SA035914

PATIENT
  Age: 80 Year
  Sex: Female

DRUGS (4)
  1. ENOXAPARIN SODIUM [Suspect]
     Indication: THROMBOSIS PROPHYLAXIS
  2. ACETYLSALICYLIC ACID [Suspect]
     Indication: THROMBOSIS PROPHYLAXIS
     Route: 048
  3. DILTIAZEM [Concomitant]
     Route: 048
  4. VENLAFAXINE [Concomitant]
     Route: 048

REACTIONS (3)
  - EXTRADURAL HAEMATOMA [None]
  - MUSCULAR WEAKNESS [None]
  - SENSORY LOSS [None]
